FAERS Safety Report 24636548 (Version 1)
Quarter: 2024Q4

REPORT INFORMATION
  Report Type: Spontaneous
  Country: US (occurrence: US)
  Receive Date: 20241119
  Receipt Date: 20241119
  Transmission Date: 20250115
  Serious: Yes (Other)
  Sender: AMGEN
  Company Number: US-AMGEN-USASP2024223849

PATIENT
  Age: 60 Year
  Sex: Female

DRUGS (13)
  1. PREDNISONE [Suspect]
     Active Substance: PREDNISONE
     Indication: Product used for unknown indication
     Dosage: UNK
     Route: 065
  2. GABAPENTIN [Concomitant]
     Active Substance: GABAPENTIN
     Indication: Fall
  3. AMITRIPTYLINE [Concomitant]
     Active Substance: AMITRIPTYLINE
  4. DOXEPIN [Concomitant]
     Active Substance: DOXEPIN
  5. LORAZEPAM [Concomitant]
     Active Substance: LORAZEPAM
  6. TRAZODONE [Concomitant]
     Active Substance: TRAZODONE HYDROCHLORIDE
     Indication: Diplopia
  7. DULOXETINE [Concomitant]
     Active Substance: DULOXETINE
  8. CYCLOBENZAPRINE [Concomitant]
     Active Substance: CYCLOBENZAPRINE
     Indication: Sedation
  9. TIZANIDINE [Concomitant]
     Active Substance: TIZANIDINE
     Indication: Confusional state
  10. BACLOFEN [Concomitant]
     Active Substance: BACLOFEN
     Indication: Hallucination
  11. VALIUM [Concomitant]
     Active Substance: DIAZEPAM
  12. SUVOREXANT [Concomitant]
     Active Substance: SUVOREXANT
  13. Immunoglobulin [Concomitant]
     Dosage: UNK
     Route: 040

REACTIONS (6)
  - Stiff person syndrome [Unknown]
  - Drug effective for unapproved indication [Unknown]
  - Mood altered [Unknown]
  - Insomnia [Unknown]
  - Fatigue [Unknown]
  - Off label use [Unknown]
